FAERS Safety Report 8043419-2 (Version None)
Quarter: 2012Q1

REPORT INFORMATION
  Report Type: 
  Country: None (occurrence: None)
  Receive Date: 20120112
  Receipt Date: 20120106
  Transmission Date: 20120608
  Serious: Yes (Other)
  Sender: FDA-Public Use
  Company Number: PHHY2012GB001270

PATIENT
  Age: 73 Year
  Sex: Female

DRUGS (1)
  1. VANCOMYCIN [Suspect]
     Route: 042

REACTIONS (3)
  - OEDEMA PERIPHERAL [None]
  - PARAESTHESIA [None]
  - HYPOAESTHESIA [None]
